FAERS Safety Report 5573684-2 (Version None)
Quarter: 2007Q4

REPORT INFORMATION
  Report Type: 
  Country: None (occurrence: None)
  Receive Date: 20071226
  Receipt Date: 20071218
  Transmission Date: 20080405
  Serious: Yes (Other)
  Sender: FDA-Public Use
  Company Number: SE-JNJFOC-20071205059

PATIENT
  Sex: Male

DRUGS (1)
  1. REMICADE [Suspect]
     Indication: ANKYLOSING SPONDYLITIS
     Route: 042

REACTIONS (6)
  - DYSPNOEA [None]
  - FLUSHING [None]
  - HYPERSENSITIVITY [None]
  - INFUSION RELATED REACTION [None]
  - NASAL CONGESTION [None]
  - TACHYCARDIA [None]
